FAERS Safety Report 7758577-4 (Version None)
Quarter: 2011Q3

REPORT INFORMATION
  Report Type: 
  Country: None (occurrence: None)
  Receive Date: 20110919
  Receipt Date: 20110907
  Transmission Date: 20111222
  Serious: Yes (Other)
  Sender: FDA-Public Use
  Company Number: US-ELI_LILLY_AND_COMPANY-US201103000662

PATIENT
  Age: 84 Year
  Sex: Female

DRUGS (1)
  1. FORTEO [Suspect]
     Indication: OSTEOPOROSIS
     Dosage: UNK, UNKNOWN

REACTIONS (7)
  - BACK PAIN [None]
  - FALL [None]
  - HEAD INJURY [None]
  - KIDNEY INFECTION [None]
  - PAIN [None]
  - UPPER LIMB FRACTURE [None]
  - MALAISE [None]
